FAERS Safety Report 10483615 (Version 2)
Quarter: 2014Q4

REPORT INFORMATION
  Report Type: Report from Study
  Country: US (occurrence: US)
  Receive Date: 20140930
  Receipt Date: 20141112
  Transmission Date: 20150528
  Serious: Yes (Other)
  Sender: FDA-Public Use
  Company Number: US-ALEXION-A201305765

PATIENT

DRUGS (1)
  1. SOLIRIS [Suspect]
     Active Substance: ECULIZUMAB
     Indication: PAROXYSMAL NOCTURNAL HAEMOGLOBINURIA
     Dosage: 900 MG, Q2W
     Route: 042
     Dates: start: 201301

REACTIONS (5)
  - Pain [Unknown]
  - Tooth abscess [Unknown]
  - Body temperature increased [Recovered/Resolved]
  - Headache [Recovered/Resolved]
  - Oropharyngeal pain [Unknown]

NARRATIVE: CASE EVENT DATE: 20130120
